FAERS Safety Report 13114933 (Version 2)
Quarter: 2017Q1

REPORT INFORMATION
  Report Type: Spontaneous
  Country: US (occurrence: US)
  Receive Date: 20170113
  Receipt Date: 20170118
  Transmission Date: 20170428
  Serious: Yes (Other)
  Sender: FDA-Public Use
  Company Number: US-PFIZER INC-2017009771

PATIENT
  Age: 78 Year
  Sex: Female
  Weight: 113.83 kg

DRUGS (15)
  1. FASLODEX [Suspect]
     Active Substance: FULVESTRANT
     Indication: BREAST CANCER FEMALE
     Dosage: 500 MG, UNK
     Route: 030
  2. AMLODIPINE [Concomitant]
     Active Substance: AMLODIPINE BESYLATE
     Dosage: 5 MG, DAILY (1 TABLET(S) EVERY DAY)
     Route: 048
  3. ESCITALOPRAM [Concomitant]
     Active Substance: ESCITALOPRAM OXALATE
     Dosage: 20 MG, DAILY (TAKE 1 TABLET(S) EVERY DAY BY ORAL ROUTE )
     Route: 048
  4. ANASTROZOLE. [Concomitant]
     Active Substance: ANASTROZOLE
     Dosage: 1 MG, DAILY
     Route: 048
  5. ACETAMINOPHEN AND CODEINE [Concomitant]
     Active Substance: ACETAMINOPHEN\CODEINE PHOSPHATE
     Dosage: UNK [ACETAMINOPHEN 300 MG] /[CODEINE 30 MG]
  6. NITROFURANTOIN. [Concomitant]
     Active Substance: NITROFURANTOIN
     Dosage: 50 MG, DAILY
     Route: 048
  7. IBRANCE [Suspect]
     Active Substance: PALBOCICLIB
     Indication: BREAST CANCER FEMALE
     Dosage: 75 MG, DAILY (TAKE 1 CAPSULE EVERY DAY BY ORAL ROUTE FOR 28 DAYS)
     Route: 048
  8. ALPRAZOLAM. [Concomitant]
     Active Substance: ALPRAZOLAM
     Dosage: 0.25 MG, UNK
  9. CLOBETASOL 0.05% [Concomitant]
     Active Substance: CLOBETASOL
     Dosage: 0.05 %, UNK
     Route: 061
  10. FASLODEX [Suspect]
     Active Substance: FULVESTRANT
     Indication: OESTROGEN RECEPTOR POSITIVE BREAST CANCER
     Dosage: 500 MG, UNK
     Route: 030
  11. LIDOCAINE. [Concomitant]
     Active Substance: LIDOCAINE
     Dosage: 5 %, UNK
     Route: 061
  12. SYNTHROID [Concomitant]
     Active Substance: LEVOTHYROXINE SODIUM
     Dosage: 50 UG, DAILY
     Route: 048
  13. VALSARTAN/HYDROCHLOROTHIAZIDE [Concomitant]
     Active Substance: HYDROCHLOROTHIAZIDE\VALSARTAN
     Dosage: UNK UNK, DAILY [VALSARTAN80 MG] / [HYDROCHLOROTHIAZIDE 12.5MG]
     Route: 048
  14. CLOBETASOL [Concomitant]
     Active Substance: CLOBETASOL
     Dosage: 0.05 %, 2X/DAY (EMOLLIENT 0.05% TOPICAL FOAM/ MORNING AND EVENING)
     Route: 061
  15. IBRANCE [Suspect]
     Active Substance: PALBOCICLIB
     Indication: OESTROGEN RECEPTOR POSITIVE BREAST CANCER
     Dosage: 125 MG, DAILY (1 CAPSULE BY MOUTH FOR 28 DAYS)
     Route: 048

REACTIONS (8)
  - Vitamin D decreased [Not Recovered/Not Resolved]
  - Carbohydrate antigen 27.29 increased [Unknown]
  - Vertigo [Unknown]
  - Rash [Unknown]
  - Neutropenia [Unknown]
  - Diarrhoea [Unknown]
  - Dizziness [Unknown]
  - White blood cell count decreased [Unknown]
